FAERS Safety Report 15752275 (Version 1)
Quarter: 2018Q4

REPORT INFORMATION
  Report Type: Spontaneous
  Country: GB (occurrence: GB)
  Receive Date: 20181221
  Receipt Date: 20181221
  Transmission Date: 20190205
  Serious: Yes (Hospitalization)
  Sender: FDA-Public Use
  Company Number: GB-TEVA-2018-GB-989479

PATIENT
  Age: 35 Year
  Sex: Female
  Weight: 74.5 kg

DRUGS (9)
  1. SPIRONOLACTONE. [Concomitant]
     Active Substance: SPIRONOLACTONE
  2. THIAMINE. [Concomitant]
     Active Substance: THIAMINE
  3. COLECALCIFEROL [Concomitant]
     Active Substance: CHOLECALCIFEROL
  4. QUETIAPINE FUMARATE. [Suspect]
     Active Substance: QUETIAPINE FUMARATE
     Dosage: 250 MILLIGRAM DAILY;
     Route: 048
     Dates: end: 20181122
  5. ESOMEPRAZOLE. [Concomitant]
     Active Substance: ESOMEPRAZOLE MAGNESIUM
  6. BACLOFEN. [Concomitant]
     Active Substance: BACLOFEN
  7. VITAMIN B COMPLEX STRONG [Concomitant]
  8. LACTULOSE. [Concomitant]
     Active Substance: LACTULOSE
  9. MIRTAZAPINE. [Concomitant]
     Active Substance: MIRTAZAPINE

REACTIONS (1)
  - Pancytopenia [Not Recovered/Not Resolved]

NARRATIVE: CASE EVENT DATE: 20181122
